FAERS Safety Report 19489690 (Version 2)
Quarter: 2021Q4

REPORT INFORMATION
  Report Type: Spontaneous
  Country: US (occurrence: US)
  Receive Date: 20210704
  Receipt Date: 20211008
  Transmission Date: 20220303
  Serious: No
  Sender: FDA-Public Use
  Company Number: US-SA-2021SA217574

PATIENT
  Age: 54 Year
  Sex: Female

DRUGS (1)
  1. DUPIXENT [Suspect]
     Active Substance: DUPILUMAB
     Indication: Dermatitis atopic
     Dosage: 300 MG, QOW
     Route: 058
     Dates: start: 20210623

REACTIONS (7)
  - Pruritus [Unknown]
  - Therapeutic response decreased [Unknown]
  - Headache [Unknown]
  - Device defective [Unknown]
  - Device leakage [Unknown]
  - Injection site pain [Unknown]
  - Incorrect dose administered [Unknown]
